FAERS Safety Report 4889442-8 (Version None)
Quarter: 2006Q1

REPORT INFORMATION
  Report Type: 
  Country: None (occurrence: None)
  Receive Date: 20060120
  Receipt Date: 20060120
  Transmission Date: 20060701
  Serious: Yes (Hospitalization)
  Sender: FDA-Public Use
  Company Number: None

PATIENT
  Age: 80 Year
  Sex: Male
  Weight: 105.6 kg

DRUGS (18)
  1. WARFARIN [Suspect]
     Indication: ATRIAL FIBRILLATION
     Dosage: 5.5MG
     Dates: end: 20050809
  2. WARFARIN [Suspect]
     Indication: STENT PLACEMENT
     Dosage: 5.5MG
     Dates: end: 20050809
  3. CLOPIDOGREL [Suspect]
     Indication: ATRIAL FIBRILLATION
     Dosage: 5.5MG DA, ORAL
     Route: 048
     Dates: end: 20050809
  4. CLOPIDOGREL [Suspect]
     Indication: STENT PLACEMENT
     Dosage: 5.5MG DA, ORAL
     Route: 048
     Dates: end: 20050809
  5. DOXYCYCLINE HYCLATE [Concomitant]
  6. ALBUTEROL / IPRATROP [Concomitant]
  7. CLOPIDOGREL BISULFATE [Concomitant]
  8. FLUNISOLIDE/ MENTHOL [Concomitant]
  9. LISINOPRIL [Concomitant]
  10. LORATADINE [Concomitant]
  11. METOPROLOL TARTRATE [Concomitant]
  12. NITROGLYCERIN [Concomitant]
  13. RANITIDINE HCL [Concomitant]
  14. TERAZOSIN HCL [Concomitant]
  15. FUROSEMIDE [Concomitant]
  16. MAGNESIUM OXIDE [Concomitant]
  17. POTASSIUM CHLORIDE [Concomitant]
  18. FLUNISOLIDE [Concomitant]

REACTIONS (1)
  - CEREBELLAR HAEMORRHAGE [None]
